FAERS Safety Report 11377277 (Version 2)
Quarter: 2015Q3

REPORT INFORMATION
  Report Type: Spontaneous
  Country: US (occurrence: US)
  Receive Date: 20150811
  Receipt Date: 20150903
  Transmission Date: 20151125
  Serious: No
  Sender: FDA-Public Use
  Company Number: US-ELI_LILLY_AND_COMPANY-US200809004551

PATIENT
  Sex: Male

DRUGS (18)
  1. CYCLOBENZAPRINE [Concomitant]
     Active Substance: CYCLOBENZAPRINE
  2. PENTOXIFYLLINE. [Concomitant]
     Active Substance: PENTOXIFYLLINE
  3. VITAMIN B [Concomitant]
     Active Substance: VITAMIN B
  4. HUMULIN N [Suspect]
     Active Substance: INSULIN HUMAN
  5. LISINOPRIL. [Concomitant]
     Active Substance: LISINOPRIL
  6. AVODART [Concomitant]
     Active Substance: DUTASTERIDE
  7. ZINC [Concomitant]
     Active Substance: ZINC\ZINC CHLORIDE
  8. IBUPROFEN. [Concomitant]
     Active Substance: IBUPROFEN
     Dosage: UNK, AS NEEDED
  9. MULTIVITAMINS [Concomitant]
     Active Substance: VITAMINS
  10. FISH OIL [Concomitant]
     Active Substance: FISH OIL
  11. LANTUS [Concomitant]
     Active Substance: INSULIN GLARGINE
  12. CARDURA [Concomitant]
     Active Substance: DOXAZOSIN MESYLATE
  13. PREVACID [Concomitant]
     Active Substance: LANSOPRAZOLE
  14. HUMALOG [Suspect]
     Active Substance: INSULIN LISPRO
  15. ASPIRIN. [Concomitant]
     Active Substance: ASPIRIN
  16. VITAMIN C [Concomitant]
     Active Substance: ASCORBIC ACID
  17. VITAMIN B COMPLEX [Concomitant]
     Active Substance: CYANOCOBALAMIN\DEXPANTHENOL\NIACINAMIDE\PYRIDOXINE HYDROCHLORIDE\RIBOFLAVIN 5^-PHOSPHATE SODIUM\THIAMINE HYDROCHLORIDE\VITAMIN B COMPLEX
  18. VITAMIN E [Concomitant]
     Active Substance: .ALPHA.-TOCOPHEROL

REACTIONS (2)
  - Urticaria [Not Recovered/Not Resolved]
  - Hypoglycaemia [Unknown]

NARRATIVE: CASE EVENT DATE: 2007
